FAERS Safety Report 6944472-7 (Version None)
Quarter: 2010Q3

REPORT INFORMATION
  Report Type: 
  Country: None (occurrence: None)
  Receive Date: 20100825
  Receipt Date: 20100825
  Transmission Date: 20110219
  Serious: Yes (Hospitalization)
  Sender: FDA-Public Use
  Company Number: None

PATIENT
  Sex: Male
  Weight: 120 kg

DRUGS (12)
  1. CISPLATIN [Suspect]
     Dosage: 72 MG
  2. CAMPTOSAR [Suspect]
     Dosage: 192 MG
  3. ACETOMINOPHIN [Concomitant]
  4. COUMADIN [Concomitant]
  5. DIPHENHYDRAMINE HCL [Concomitant]
  6. ENOXAPARIN SODIUM [Concomitant]
  7. ESOMEPRAZOLE MAGNESIUM [Concomitant]
  8. LEVOTHRYROXINE [Concomitant]
  9. LORAZEPAM [Concomitant]
  10. ONDANSETRON [Concomitant]
  11. PROCHLORPERAZINE [Concomitant]
  12. TAMSULOSIN HCL [Concomitant]

REACTIONS (5)
  - CHEST PAIN [None]
  - DEEP VEIN THROMBOSIS [None]
  - HYPOKALAEMIA [None]
  - INTERNATIONAL NORMALISED RATIO DECREASED [None]
  - PYREXIA [None]
